FAERS Safety Report 15182140 (Version 2)
Quarter: 2018Q4

REPORT INFORMATION
  Report Type: Report from Study
  Country: US (occurrence: US)
  Receive Date: 20180723
  Receipt Date: 20181017
  Transmission Date: 20190204
  Serious: No
  Sender: FDA-Public Use
  Company Number: US-AMGEN-USASL2018092763

PATIENT
  Age: 73 Year
  Sex: Female
  Weight: 103.7 kg

DRUGS (12)
  1. ASPIR LOW [Concomitant]
     Active Substance: ASPIRIN
     Dosage: 81 MG, QD
     Route: 048
  2. IRON [Concomitant]
     Active Substance: IRON
     Dosage: 45 MG, QD
     Route: 002
  3. NITROGLYCERIN. [Concomitant]
     Active Substance: NITROGLYCERIN
     Dosage: 0.4 MG, (PLACE 1 TAB AT FIRST SIGN OF ATTACK)
     Route: 060
  4. FOLIC ACID. [Concomitant]
     Active Substance: FOLIC ACID
     Dosage: 400 MUG, QD
     Route: 048
  5. LISINOPRIL. [Concomitant]
     Active Substance: LISINOPRIL
     Dosage: 2.5 MG, QD
     Route: 048
  6. BIOTIN [Concomitant]
     Active Substance: BIOTIN
     Dosage: 5000 MUG, UNK
     Route: 048
  7. MULTIVITAMIN [Concomitant]
     Active Substance: VITAMINS
     Dosage: 1 DF, QD
  8. REPATHA [Suspect]
     Active Substance: EVOLOCUMAB
     Indication: BLOOD CHOLESTEROL INCREASED
     Dosage: 140 MG/ML, Q2WK
     Route: 058
     Dates: start: 20180703
  9. METFORMIN W/PIOGLITAZONE [Concomitant]
     Active Substance: METFORMIN HYDROCHLORIDE\PIOGLITAZONE HYDROCHLORIDE
     Dosage: 500 MG, BID (PIOGLITAZONE 15 MG)
     Route: 048
  10. NASONEX [Concomitant]
     Active Substance: MOMETASONE FUROATE
     Dosage: 50 MUG, QD
     Route: 045
  11. CARVEDILOL. [Concomitant]
     Active Substance: CARVEDILOL
     Dosage: 6.25 MG, BID
     Route: 048
  12. SPIRONOLACTONE. [Concomitant]
     Active Substance: SPIRONOLACTONE
     Dosage: 25 MG, QD
     Route: 048

REACTIONS (6)
  - Oedema peripheral [Unknown]
  - Dyspnoea [Unknown]
  - Chest discomfort [Recovering/Resolving]
  - Chest pain [Unknown]
  - Overweight [Unknown]
  - Cardiac murmur [Unknown]

NARRATIVE: CASE EVENT DATE: 201807
